FAERS Safety Report 20494098 (Version 2)
Quarter: 2022Q4

REPORT INFORMATION
  Report Type: Spontaneous
  Country: US (occurrence: US)
  Receive Date: 20220221
  Receipt Date: 20221030
  Transmission Date: 20230113
  Serious: No
  Sender: FDA-Public Use
  Company Number: US-SA-SAC20220215000103

PATIENT
  Age: 24 Year
  Sex: Female

DRUGS (10)
  1. DUPIXENT [Suspect]
     Active Substance: DUPILUMAB
     Indication: Dermatitis atopic
     Dosage: 300 MG, QOW
     Route: 058
     Dates: start: 20190326
  2. AIMOVIG [Concomitant]
     Active Substance: ERENUMAB-AOOE
  3. FIORICET [Concomitant]
     Active Substance: ACETAMINOPHEN\BUTALBITAL\CAFFEINE
  4. GABAPENTIN [Concomitant]
     Active Substance: GABAPENTIN
  5. OPZELURA [Concomitant]
     Active Substance: RUXOLITINIB PHOSPHATE
  6. PREDNISONE [Concomitant]
     Active Substance: PREDNISONE
  7. PROTOPIC [Concomitant]
     Active Substance: TACROLIMUS
  8. DEVICE [Concomitant]
     Active Substance: DEVICE
  9. EMOLLIENTS [Concomitant]
     Active Substance: EMOLLIENTS
  10. TRIAMCINOLON [TRIAMCINOLONE ACETONIDE] [Concomitant]

REACTIONS (4)
  - Discomfort [Not Recovered/Not Resolved]
  - Insomnia [Not Recovered/Not Resolved]
  - Dermatitis atopic [Not Recovered/Not Resolved]
  - Rash [Not Recovered/Not Resolved]
